FAERS Safety Report 6143978-0 (Version None)
Quarter: 2009Q2

REPORT INFORMATION
  Report Type: 
  Country: None (occurrence: None)
  Receive Date: 20090406
  Receipt Date: 20090331
  Transmission Date: 20091009
  Serious: Yes (Life-Threatening, Other)
  Sender: FDA-Public Use
  Company Number: CA-JNJFOC-20090303293

PATIENT
  Age: 31 Year
  Sex: Male
  Weight: 75 kg

DRUGS (10)
  1. RISPERIDONE [Suspect]
     Route: 048
  2. RISPERIDONE [Suspect]
     Route: 048
  3. RISPERIDONE [Suspect]
     Indication: DRUG USE FOR UNKNOWN INDICATION
     Route: 048
  4. RISPERDAL [Suspect]
     Dosage: 4 MG TO 5 MG ONCE A DAY AT BEDTIME ON DAY FOUR.
     Route: 048
  5. RISPERDAL [Suspect]
     Route: 048
  6. RISPERDAL [Suspect]
     Route: 048
  7. RISPERDAL [Suspect]
     Indication: DRUG USE FOR UNKNOWN INDICATION
     Route: 048
  8. SSRI [Concomitant]
     Route: 065
  9. TYROSINE [Concomitant]
  10. TRYPTOPHAN [Concomitant]

REACTIONS (6)
  - AKATHISIA [None]
  - ANXIETY [None]
  - DEPRESSION [None]
  - LIBIDO DECREASED [None]
  - OBSESSIVE-COMPULSIVE DISORDER [None]
  - SUICIDAL IDEATION [None]
